FAERS Safety Report 9387148 (Version 1)
Quarter: 2013Q3

REPORT INFORMATION
  Report Type: Spontaneous
  Country: FR (occurrence: FR)
  Receive Date: 20130708
  Receipt Date: 20130708
  Transmission Date: 20140515
  Serious: Yes (Other)
  Sender: FDA-Public Use
  Company Number: FR-GENZYME-CAMP-1003013

PATIENT
  Age: 64 Year
  Sex: Male
  Weight: 82 kg

DRUGS (3)
  1. CAMPATH [Suspect]
     Indication: CHRONIC LYMPHOCYTIC LEUKAEMIA
     Dosage: UNK
     Route: 042
     Dates: start: 20130617, end: 20130624
  2. BACTRIM [Concomitant]
     Indication: INFECTION PROPHYLAXIS
     Dosage: 1 DF, 3X/W
     Route: 065
     Dates: start: 20130618
  3. VALACICLOVIR [Concomitant]
     Indication: INFECTION PROPHYLAXIS
     Dosage: 1 DF, BID
     Route: 065
     Dates: start: 20130617

REACTIONS (1)
  - Cytokine release syndrome [Recovered/Resolved]
